FAERS Safety Report 13716906 (Version 1)
Quarter: 2017Q3

REPORT INFORMATION
  Report Type: Other
  Country: DE (occurrence: DE)
  Receive Date: 20170705
  Receipt Date: 20170705
  Transmission Date: 20171127
  Serious: Yes (Death, Other)
  Sender: FDA-Public Use
  Company Number: DE-LUPIN PHARMACEUTICALS INC.-2017-02395

PATIENT

DRUGS (8)
  1. SIMVASTATIN. [Suspect]
     Active Substance: SIMVASTATIN
     Indication: CORONARY ARTERY DISEASE
     Dosage: 40 MG, UNK
     Route: 048
     Dates: start: 2016, end: 20161206
  2. BICANORM [Concomitant]
     Active Substance: SODIUM BICARBONATE
     Indication: METABOLIC ACIDOSIS
     Dosage: 1 DF, UNK
     Route: 048
     Dates: start: 20161217
  3. PALEXIA [Concomitant]
     Active Substance: TAPENTADOL HYDROCHLORIDE
     Indication: PAIN
     Dosage: 50 MG, QD
     Route: 048
     Dates: start: 2016, end: 20161201
  4. DIGITOXIN [Concomitant]
     Active Substance: DIGITOXIN
     Indication: ATRIAL FIBRILLATION
     Dosage: 0.07 MG, QD
     Route: 048
  5. TAMSULOSIN [Concomitant]
     Active Substance: TAMSULOSIN
     Indication: BENIGN PROSTATIC HYPERPLASIA
     Dosage: 0.4 MG, QD
     Route: 048
  6. PANTOZOL [Concomitant]
     Active Substance: PANTOPRAZOLE SODIUM
     Indication: GASTRITIS
     Dosage: UNK
     Route: 048
  7. NALOXON [Concomitant]
     Active Substance: NALOXONE HYDROCHLORIDE
     Indication: REVERSAL OF OPIATE ACTIVITY
     Dosage: 0.4 MG, UNK
     Route: 048
     Dates: start: 20161202
  8. TOREM                              /01036501/ [Concomitant]
     Active Substance: TORSEMIDE
     Indication: HYPERVOLAEMIA
     Dosage: 20 MG, UNK
     Route: 048
     Dates: start: 20161207, end: 20161222

REACTIONS (2)
  - Rhabdomyolysis [Fatal]
  - Acute kidney injury [Fatal]

NARRATIVE: CASE EVENT DATE: 20161129
